FAERS Safety Report 20429655 (Version 1)
Quarter: 2022Q1

REPORT INFORMATION
  Report Type: Report from Study
  Country: FR (occurrence: FR)
  Receive Date: 20220204
  Receipt Date: 20220204
  Transmission Date: 20220424
  Serious: Yes (Other)
  Sender: FDA-Public Use
  Company Number: FR-SERVIER-S19008969

PATIENT

DRUGS (4)
  1. ONCASPAR [Suspect]
     Active Substance: PEGASPARGASE
     Indication: Acute lymphocytic leukaemia
     Dosage: 2400 IU ON D12 OF EACH CYCLE
     Route: 042
     Dates: start: 20180109, end: 20180109
  2. DEXAMETHASONE [Suspect]
     Active Substance: DEXAMETHASONE
     Indication: Acute lymphocytic leukaemia
     Dosage: 6 MG ON D8-28 OF EACH CYCLE
     Route: 048
     Dates: start: 20180105, end: 20180125
  3. TN UNSPECIFIED [Concomitant]
     Indication: Acute lymphocytic leukaemia
     Dosage: 1.4 MG ON D1, D8, D15, D22 AND D29 OF EACH CYCLE
     Route: 042
     Dates: start: 20180105, end: 20180126
  4. TN UNSPECIFIED [Concomitant]
     Indication: Acute lymphocytic leukaemia
     Dosage: 12 MG ON D1, D13, D24 OF EACH CYCLE
     Route: 037
     Dates: start: 20171229, end: 20180121

REACTIONS (1)
  - Gamma-glutamyltransferase increased [Recovered/Resolved]

NARRATIVE: CASE EVENT DATE: 20180126
